FAERS Safety Report 6644820-1 (Version None)
Quarter: 2010Q1

REPORT INFORMATION
  Report Type: 
  Country: None (occurrence: None)
  Receive Date: 20100322
  Receipt Date: 20100312
  Transmission Date: 20100710
  Serious: Yes (Hospitalization)
  Sender: FDA-Public Use
  Company Number: A0850134A

PATIENT
  Age: 68 Year
  Sex: Female

DRUGS (6)
  1. ALLI [Suspect]
     Indication: WEIGHT LOSS DIET
     Dates: start: 20070601, end: 20080901
  2. FOSAMAX [Concomitant]
     Indication: OSTEOPENIA
     Route: 048
  3. LISINOPRIL [Concomitant]
     Indication: BLOOD PRESSURE
     Route: 048
  4. TRIAMTERENE AND HYDROCHLOROTHIAZIDE [Concomitant]
     Indication: BLOOD PRESSURE
     Route: 048
  5. SIMVASTATIN [Concomitant]
     Route: 048
  6. ASPIRIN [Concomitant]
     Route: 048

REACTIONS (14)
  - ABASIA [None]
  - COLON OPERATION [None]
  - COLONOSCOPY [None]
  - CONSTIPATION [None]
  - DIVERTICULITIS [None]
  - HAEMORRHAGE [None]
  - IMPAIRED HEALING [None]
  - INFECTION [None]
  - PAIN [None]
  - SIGMOIDECTOMY [None]
  - STEATORRHOEA [None]
  - STREPTOCOCCAL INFECTION [None]
  - UMBILICAL HERNIA [None]
  - WOUND [None]
